FAERS Safety Report 25968346 (Version 2)
Quarter: 2025Q4

REPORT INFORMATION
  Report Type: Report from Study
  Country: GB (occurrence: GB)
  Receive Date: 20251028
  Receipt Date: 20251125
  Transmission Date: 20260118
  Serious: Yes (Hospitalization)
  Sender: ALEXION PHARMACEUTICALS
  Company Number: GB-AstraZeneca-CH-00976932A

PATIENT
  Age: 64 Year
  Sex: Female

DRUGS (2)
  1. TEZSPIRE [Suspect]
     Active Substance: TEZEPELUMAB-EKKO
     Indication: Asthma
     Dosage: 210 MILLIGRAM
  2. TEZSPIRE [Suspect]
     Active Substance: TEZEPELUMAB-EKKO

REACTIONS (7)
  - Diabetes mellitus [Unknown]
  - Blood test abnormal [Unknown]
  - Nasopharyngitis [Unknown]
  - Cough [Unknown]
  - Oropharyngeal pain [Unknown]
  - Viral infection [Unknown]
  - Vomiting [Unknown]

NARRATIVE: CASE EVENT DATE: 20251013
